FAERS Safety Report 16139709 (Version 2)
Quarter: 2019Q1

REPORT INFORMATION
  Report Type: Spontaneous
  Country: US (occurrence: US)
  Receive Date: 20190330
  Receipt Date: 20190330
  Transmission Date: 20190418
  Serious: Yes (Other)
  Sender: FDA-Public Use
  Company Number: PHEH2019US013114

PATIENT
  Age: 15 Year
  Sex: Male
  Weight: 62 kg

DRUGS (10)
  1. URSODIOL. [Suspect]
     Active Substance: URSODIOL
     Indication: CYSTIC FIBROSIS HEPATIC DISEASE
     Dosage: 300 MG, BID
     Route: 048
  2. AMIKACIN. [Suspect]
     Active Substance: AMIKACIN
     Dosage: 250 MG, BID
     Route: 055
     Dates: start: 201709
  3. INSULIN [Suspect]
     Active Substance: INSULIN NOS
     Indication: CYSTIC FIBROSIS RELATED DIABETES
     Dosage: UNK
     Route: 058
     Dates: start: 201807
  4. LINEZOLID. [Suspect]
     Active Substance: LINEZOLID
     Indication: MYCOBACTERIUM ABSCESSUS INFECTION
     Dosage: 600 MG, BID
     Route: 048
     Dates: start: 201809
  5. MONTELUKAST SODIUM. [Suspect]
     Active Substance: MONTELUKAST SODIUM
     Indication: CYSTIC FIBROSIS LUNG
     Dosage: 5 MG, QD
     Route: 048
  6. FLOVENT [Suspect]
     Active Substance: FLUTICASONE PROPIONATE
     Indication: CYSTIC FIBROSIS LUNG
     Dosage: 2 OT (INH), BID
     Route: 055
  7. CLOFAZIMINE [Suspect]
     Active Substance: CLOFAZIMINE
     Indication: MYCOBACTERIUM ABSCESSUS INFECTION
     Dosage: 100 MG, BID
     Route: 048
     Dates: start: 20181203
  8. PRILOSEC [Suspect]
     Active Substance: OMEPRAZOLE MAGNESIUM
     Indication: PANCREATIC FAILURE
     Dosage: 20 MG, UNK
     Route: 048
  9. CREON [Suspect]
     Active Substance: PANCRELIPASE AMYLASE\PANCRELIPASE LIPASE\PANCRELIPASE PROTEASE
     Indication: CYSTIC FIBROSIS PANCREATIC
     Dosage: 5 CAP WITH MEALS
     Route: 048
  10. PULMOZYME [Suspect]
     Active Substance: DORNASE ALFA
     Indication: CYSTIC FIBROSIS
     Dosage: 25 MG, QD
     Route: 055

REACTIONS (4)
  - Pain in extremity [Not Recovered/Not Resolved]
  - Neuropathy peripheral [Not Recovered/Not Resolved]
  - Paraesthesia [Not Recovered/Not Resolved]
  - Dysaesthesia [Unknown]

NARRATIVE: CASE EVENT DATE: 20190311
